FAERS Safety Report 20988128 (Version 1)
Quarter: 2022Q2

REPORT INFORMATION
  Report Type: Spontaneous
  Country: US (occurrence: None)
  Receive Date: 20220620
  Receipt Date: 20220620
  Transmission Date: 20220721
  Serious: No
  Sender: FDA-Public Use
  Company Number: None

PATIENT
  Age: 78 Year
  Sex: Female
  Weight: 83.46 kg

DRUGS (12)
  1. KISQALI [Suspect]
     Active Substance: RIBOCICLIB
     Indication: Breast cancer female
     Dosage: OTHER FREQUENCY : 3W, 1W OFF;?
     Route: 048
     Dates: start: 202205
  2. BENADRYL ALLERGY [Concomitant]
     Active Substance: DIPHENHYDRAMINE HYDROCHLORIDE
  3. CALCIUM [Concomitant]
     Active Substance: CALCIUM
  4. COLLAGEN COQ10 [Concomitant]
  5. ELIQUIS [Concomitant]
     Active Substance: APIXABAN
  6. MAGNESIUM [Concomitant]
     Active Substance: MAGNESIUM
  7. DIMETHYL SULFONE [Concomitant]
     Active Substance: DIMETHYL SULFONE
  8. OMEGA 3 [Concomitant]
     Active Substance: CAPSAICIN
  9. GLUCOSAMINE CHRONDROTIN [Concomitant]
  10. HERBALS\TURMERIC [Concomitant]
     Active Substance: HERBALS\TURMERIC
  11. VITAMIN B [Concomitant]
     Active Substance: VITAMIN B
  12. VITAMIN D3 [Concomitant]
     Active Substance: CHOLECALCIFEROL

REACTIONS (1)
  - Rectal haemorrhage [None]
